FAERS Safety Report 5721031-5 (Version None)
Quarter: 2008Q2

REPORT INFORMATION
  Report Type: 
  Country: None (occurrence: None)
  Receive Date: 20080423
  Receipt Date: 20071205
  Transmission Date: 20081010
  Serious: Yes (Hospitalization)
  Sender: FDA-Public Use
  Company Number: 252344

PATIENT
  Age: 24 Year
  Sex: Male

DRUGS (4)
  1. AVASTIN [Suspect]
     Indication: MALIGNANT GLIOMA
     Dosage: Q2W, INTRAVENOUS
     Route: 042
     Dates: start: 20070301
  2. AVASTIN [Suspect]
     Indication: RECURRENT CANCER
     Dosage: Q2W, INTRAVENOUS
     Route: 042
     Dates: start: 20070301
  3. IRINOTECAN HCL [Concomitant]
  4. STEROIDS NOS (STEROID NOS) [Concomitant]

REACTIONS (2)
  - CONSTIPATION [None]
  - PNEUMONIA [None]
